FAERS Safety Report 11570638 (Version 4)
Quarter: 2015Q4

REPORT INFORMATION
  Report Type: Spontaneous
  Country: HU (occurrence: HU)
  Receive Date: 20150929
  Receipt Date: 20151023
  Transmission Date: 20160304
  Serious: Yes (Death, Other)
  Sender: FDA-Public Use
  Company Number: HU-JNJFOC-20150924721

PATIENT
  Age: 60 Year
  Sex: Male

DRUGS (2)
  1. IMBRUVICA [Suspect]
     Active Substance: IBRUTINIB
     Indication: CHRONIC LYMPHOCYTIC LEUKAEMIA
     Route: 048
  2. HALOTHAN [Concomitant]
     Indication: ANAL ABSCESS

REACTIONS (6)
  - Pyrexia [Unknown]
  - Hepatic enzyme increased [Unknown]
  - Splenomegaly [Unknown]
  - Disease progression [Fatal]
  - Hepatic failure [Unknown]
  - Hepatomegaly [Unknown]

NARRATIVE: CASE EVENT DATE: 2015
